FAERS Safety Report 11031261 (Version 1)
Quarter: 2015Q2

REPORT INFORMATION
  Report Type: Spontaneous
  Country: US (occurrence: None)
  Receive Date: 20150414
  Receipt Date: 20150414
  Transmission Date: 20150821
  Serious: Yes (Other)
  Sender: FDA-Public Use
  Company Number: None

PATIENT
  Age: 65 Year
  Sex: Male

DRUGS (8)
  1. METFORMIN [Concomitant]
     Active Substance: METFORMIN HYDROCHLORIDE
  2. VITAMINS E [Concomitant]
  3. ATORVASTATIN [Concomitant]
     Active Substance: ATORVASTATIN
  4. CINNAMON EXTRACT [Concomitant]
  5. ATORVASTATIN [Suspect]
     Active Substance: ATORVASTATIN
     Indication: BLOOD CHOLESTEROL
     Route: 048
     Dates: start: 20150101, end: 20150410
  6. FISH OIL [Concomitant]
     Active Substance: FISH OIL
  7. VITAMIN B12 [Concomitant]
     Active Substance: CYANOCOBALAMIN
  8. GLIPZIDE [Concomitant]
     Active Substance: GLIPIZIDE

REACTIONS (4)
  - Visual impairment [None]
  - Abdominal pain [None]
  - Eating disorder [None]
  - Muscular weakness [None]

NARRATIVE: CASE EVENT DATE: 20150410
